FAERS Safety Report 17337911 (Version 1)
Quarter: 2020Q1

REPORT INFORMATION
  Report Type: Spontaneous
  Country: PE (occurrence: PE)
  Receive Date: 20200129
  Receipt Date: 20200129
  Transmission Date: 20200409
  Serious: Yes (Other)
  Sender: FDA-Public Use
  Company Number: PE-SA-2020SA017111

PATIENT
  Age: 32 Year
  Sex: Female

DRUGS (1)
  1. ENOXAPARIN SODIUM. [Suspect]
     Active Substance: ENOXAPARIN SODIUM
     Indication: THROMBOSIS PROPHYLAXIS
     Dosage: 40 MG, CONT
     Route: 058

REACTIONS (4)
  - Protein S deficiency [Unknown]
  - Exposure during pregnancy [Unknown]
  - Premature delivery [Unknown]
  - Hypercoagulation [Recovered/Resolved]
